APPROVED DRUG PRODUCT: PENICILLIN G POTASSIUM
Active Ingredient: PENICILLIN G POTASSIUM
Strength: 1,000,000 UNITS/VIAL
Dosage Form/Route: INJECTABLE;INJECTION
Application: A065149 | Product #001
Applicant: HQ SPECIALTY PHARMA CORP
Approved: Jul 23, 2009 | RLD: No | RS: No | Type: RX